FAERS Safety Report 19017066 (Version 1)
Quarter: 2021Q1

REPORT INFORMATION
  Report Type: Spontaneous
  Country: CA (occurrence: CA)
  Receive Date: 20210317
  Receipt Date: 20210317
  Transmission Date: 20210420
  Serious: Yes (Other)
  Sender: FDA-Public Use
  Company Number: CA-JNJFOC-20210323550

PATIENT

DRUGS (5)
  1. REMICADE [Suspect]
     Active Substance: INFLIXIMAB
     Indication: CROHN^S DISEASE
     Route: 042
  2. AZATHIOPRINE. [Suspect]
     Active Substance: AZATHIOPRINE
     Indication: PRODUCT USED FOR UNKNOWN INDICATION
     Route: 065
  3. CEFAZOLIN SODIUM. [Suspect]
     Active Substance: CEFAZOLIN SODIUM
     Indication: PRODUCT USED FOR UNKNOWN INDICATION
     Route: 030
  4. RABEPRAZOLE [Suspect]
     Active Substance: RABEPRAZOLE
     Indication: PRODUCT USED FOR UNKNOWN INDICATION
     Route: 065
  5. BUDESONIDE. [Suspect]
     Active Substance: BUDESONIDE
     Indication: PRODUCT USED FOR UNKNOWN INDICATION

REACTIONS (1)
  - Pancreatitis [Unknown]
